FAERS Safety Report 6545447-2 (Version None)
Quarter: 2010Q1

REPORT INFORMATION
  Report Type: 
  Country: None (occurrence: None)
  Receive Date: 20100119
  Receipt Date: 20100107
  Transmission Date: 20100710
  Serious: Yes (Congenital Anomaly)
  Sender: FDA-Public Use
  Company Number: 2010US000054

PATIENT
  Sex: Male
  Weight: 3 kg

DRUGS (6)
  1. PROGRAF [Suspect]
     Indication: DRUG EXPOSURE DURING PREGNANCY
     Dosage: 4 MG, BID, OTHER
     Route: 050
  2. PREDNISONE [Concomitant]
  3. ROCALTROL [Concomitant]
  4. SLOW-MAG (MAGNESIUM) [Concomitant]
  5. PRENATAL VITAMINS (MINERALS NOS) [Concomitant]
  6. OSCAL D (CALCIUM CARBONATE, COLECALCIFEROL) [Concomitant]

REACTIONS (3)
  - CAESAREAN SECTION [None]
  - HYPOSPADIAS [None]
  - MATERNAL DRUGS AFFECTING FOETUS [None]
